FAERS Safety Report 12333500 (Version 1)
Quarter: 2016Q2

REPORT INFORMATION
  Report Type: Spontaneous
  Country: US (occurrence: US)
  Receive Date: 20160504
  Receipt Date: 20160504
  Transmission Date: 20160815
  Serious: No
  Sender: FDA-Public Use
  Company Number: US-ROCHE-1666094

PATIENT
  Age: 72 Year
  Sex: Female

DRUGS (2)
  1. ESBRIET [Suspect]
     Active Substance: PIRFENIDONE
     Indication: IDIOPATHIC PULMONARY FIBROSIS
     Route: 048
     Dates: start: 20151030
  2. ESBRIET [Suspect]
     Active Substance: PIRFENIDONE
     Dosage: 2 CAPSULES
     Route: 048

REACTIONS (2)
  - Headache [Recovering/Resolving]
  - Nausea [Recovering/Resolving]

NARRATIVE: CASE EVENT DATE: 20151121
